FAERS Safety Report 6366448-3 (Version None)
Quarter: 2009Q3

REPORT INFORMATION
  Report Type: 
  Country: None (occurrence: None)
  Receive Date: 20090921
  Receipt Date: 20090911
  Transmission Date: 20100115
  Serious: Yes (Hospitalization)
  Sender: FDA-Public Use
  Company Number: SE-ASTRAZENECA-2009SE12858

PATIENT
  Age: 87 Year
  Sex: Female

DRUGS (6)
  1. ATACAND [Suspect]
     Indication: ESSENTIAL HYPERTENSION
     Route: 048
     Dates: end: 20090501
  2. ATACAND [Suspect]
     Route: 048
     Dates: start: 20090501
  3. SELOKEN [Concomitant]
     Route: 048
  4. DIGOXIN BIOPHAUSIA [Concomitant]
  5. TROMBYL [Concomitant]
  6. TRIOBE [Concomitant]

REACTIONS (1)
  - HAEMATOMA [None]
